FAERS Safety Report 8217813-0 (Version None)
Quarter: 2012Q1

REPORT INFORMATION
  Report Type: 
  Country: None (occurrence: None)
  Receive Date: 20120319
  Receipt Date: 20120308
  Transmission Date: 20120608
  Serious: Yes (Other)
  Sender: FDA-Public Use
  Company Number: CA-JNJFOC-20120304631

PATIENT
  Sex: Female
  Weight: 52.16 kg

DRUGS (1)
  1. REMICADE [Suspect]
     Indication: CROHN'S DISEASE
     Route: 042

REACTIONS (5)
  - DRUG INEFFECTIVE [None]
  - ABDOMINAL DISCOMFORT [None]
  - DEPRESSION [None]
  - VOMITING [None]
  - PAIN [None]
